FAERS Safety Report 5910766-7 (Version None)
Quarter: 2008Q4

REPORT INFORMATION
  Report Type: 
  Country: None (occurrence: None)
  Receive Date: 20081007
  Receipt Date: 20080423
  Transmission Date: 20090506
  Serious: No
  Sender: FDA-Public Use
  Company Number: US-ASTRAZENECA-2008UW08226

PATIENT
  Age: 76 Year
  Sex: Female
  Weight: 68 kg

DRUGS (3)
  1. ARIMIDEX [Suspect]
     Indication: BREAST CANCER
     Route: 048
     Dates: start: 20071001
  2. ASPIRIN [Concomitant]
  3. NORVASC [Concomitant]

REACTIONS (5)
  - ANOREXIA [None]
  - ARTHRALGIA [None]
  - HOT FLUSH [None]
  - MOOD SWINGS [None]
  - WEIGHT INCREASED [None]
